FAERS Safety Report 7223295-8 (Version None)
Quarter: 2011Q1

REPORT INFORMATION
  Report Type: 
  Country: None (occurrence: None)
  Receive Date: 20110112
  Receipt Date: 20100415
  Transmission Date: 20110831
  Serious: No
  Sender: FDA-Public Use
  Company Number: US-ALLERGAN-1004932US

PATIENT
  Sex: Female

DRUGS (6)
  1. BENICAR [Concomitant]
  2. ASPIRIN [Concomitant]
  3. AMLODIPINE BESYLATE [Concomitant]
  4. XANAX [Concomitant]
  5. ETHOSUXIMIDE [Concomitant]
  6. RESTASIS [Suspect]
     Indication: DRY EYE
     Dosage: UNK
     Route: 047
     Dates: start: 20100412

REACTIONS (1)
  - VISUAL IMPAIRMENT [None]
